FAERS Safety Report 6729645-0 (Version None)
Quarter: 2010Q2

REPORT INFORMATION
  Report Type: 
  Country: None (occurrence: None)
  Receive Date: 20100518
  Receipt Date: 20100506
  Transmission Date: 20101027
  Serious: Yes (Other)
  Sender: FDA-Public Use
  Company Number: JP-JNJFOC-20100502595

PATIENT
  Sex: Female
  Weight: 47 kg

DRUGS (12)
  1. DOXIL [Suspect]
     Indication: OVARIAN CANCER RECURRENT
     Route: 042
  2. DOXIL [Suspect]
     Dosage: CYCLE 5
     Route: 042
  3. DOXIL [Suspect]
     Route: 042
  4. LOXONIN [Concomitant]
     Route: 048
  5. DAI-KENCHU-TO [Concomitant]
     Route: 048
  6. GOREISAN [Concomitant]
     Route: 048
  7. MAGLAX [Concomitant]
     Route: 048
  8. AMOBAN [Concomitant]
     Route: 048
  9. PYDOXAL [Concomitant]
     Indication: PROPHYLAXIS
     Route: 048
  10. RAMELTEON [Concomitant]
     Indication: PROPHYLAXIS
     Route: 048
  11. HACHIAZULE [Concomitant]
     Indication: PROPHYLAXIS
     Route: 002
  12. KENALOG [Concomitant]
     Route: 061

REACTIONS (1)
  - PURPURA [None]
